FAERS Safety Report 6691995-4 (Version None)
Quarter: 2010Q2

REPORT INFORMATION
  Report Type: 
  Country: None (occurrence: None)
  Receive Date: 20100422
  Receipt Date: 20100416
  Transmission Date: 20101027
  Serious: Yes (Hospitalization, Other)
  Sender: FDA-Public Use
  Company Number: KR-ROCHE-674436

PATIENT
  Sex: Female
  Weight: 56 kg

DRUGS (12)
  1. TRASTUZUMAB [Suspect]
     Dosage: FORM: VIALS; DOSE LEVEL: 6 MG/KG; DATE OF LAST DOSE PRIOR TO SAE: 24 DECEMBER 2009.
     Route: 042
     Dates: start: 20091112
  2. BEVACIZUMAB [Suspect]
     Dosage: FORM: VIALS; DATE OF LAST DOSE PRIOR TO SAE: 24 DECEMBER 2009; DOSE LEVEL: 15 MG/KG.
     Route: 042
     Dates: start: 20091112
  3. DOCETAXEL [Suspect]
     Dosage: FORM: VIALS; DOSE LEVEL: 75 MG/ME2; DATE OF LAST DOSE PRIOR TO SAE: 24 DECEMBER 2009.
     Route: 042
     Dates: start: 20091112
  4. CARBOPLATIN [Suspect]
     Dosage: FORM: VIALS; DATE OF LAST DOSE PRIOR TO SAE: 24 DECEMBER 2009; DOSE LEVEL: 6 AUC.
     Route: 042
     Dates: start: 20091112
  5. AMARYL [Concomitant]
     Dates: start: 20010101
  6. DICHLOZID [Concomitant]
     Dates: start: 20030101
  7. APROVEL [Concomitant]
     Dates: start: 20030101
  8. GLUCOBAY [Concomitant]
     Dates: start: 20091204
  9. METFORMIN HCL [Concomitant]
     Dates: start: 20010101
  10. ZOFRAN [Concomitant]
     Dates: start: 20091224, end: 20091227
  11. ZOLPIDEM [Concomitant]
     Dates: start: 20091226, end: 20100106
  12. ULTRACET [Concomitant]
     Dates: start: 20091226, end: 20100101

REACTIONS (3)
  - DEPRESSION [None]
  - VOMITING [None]
  - WEIGHT DECREASED [None]
